FAERS Safety Report 6041689-3 (Version None)
Quarter: 2009Q1

REPORT INFORMATION
  Report Type: 
  Country: None (occurrence: None)
  Receive Date: 20090116
  Receipt Date: 20080104
  Transmission Date: 20090719
  Serious: No
  Sender: FDA-Public Use
  Company Number: US-BRISTOL-MYERS SQUIBB COMPANY-14031108

PATIENT
  Age: 20 Year
  Sex: Male
  Weight: 93 kg

DRUGS (12)
  1. ABILIFY [Suspect]
     Indication: MOOD SWINGS
  2. ABILIFY [Suspect]
     Indication: ATTENTION DEFICIT/HYPERACTIVITY DISORDER
  3. ALBUTEROL [Concomitant]
  4. SPIRIVA [Concomitant]
  5. ADVAIR DISKUS 100/50 [Concomitant]
  6. LORATADINE [Concomitant]
  7. SINGULAIR [Concomitant]
  8. XOPENEX [Concomitant]
  9. VERAPAMIL [Concomitant]
  10. METOPROLOL TARTRATE [Concomitant]
  11. HYDROCODONE BITARTRATE [Concomitant]
  12. PREVACID [Concomitant]

REACTIONS (6)
  - BODY TEMPERATURE INCREASED [None]
  - DYSKINESIA [None]
  - HEART RATE INCREASED [None]
  - HYPOAESTHESIA [None]
  - PAIN [None]
  - PARAESTHESIA [None]
